FAERS Safety Report 12759517 (Version 2)
Quarter: 2016Q4

REPORT INFORMATION
  Report Type: Spontaneous
  Country: US (occurrence: US)
  Receive Date: 20160919
  Receipt Date: 20161209
  Transmission Date: 20170207
  Serious: Yes (Hospitalization)
  Sender: FDA-Public Use
  Company Number: US-PFIZER INC-2016433906

PATIENT
  Age: 80 Year
  Sex: Female
  Weight: 67.13 kg

DRUGS (11)
  1. XELJANZ [Suspect]
     Active Substance: TOFACITINIB CITRATE
     Indication: RHEUMATOID ARTHRITIS
     Dosage: 5MG ONE PILL ONCE IN THE MORNING AND ONCE AT NIGHT
     Route: 048
     Dates: start: 20160615
  2. PREDNISONE. [Concomitant]
     Active Substance: PREDNISONE
     Indication: RHEUMATOID ARTHRITIS
     Dosage: 10 MG, 1X/DAY (5MG TABLET TWO TABLETS ONCE A DAY)
     Route: 048
     Dates: start: 20130114
  3. CARVEDILOL. [Concomitant]
     Active Substance: CARVEDILOL
     Indication: CARDIAC DISORDER
     Dosage: 6.25 MG, 2X/DAY (6.25MG TABLET ONE IN THE MORNING AND ONE AT NIGHT)
     Route: 048
     Dates: start: 20101019
  4. LISINOPRIL. [Concomitant]
     Active Substance: LISINOPRIL
     Indication: BLOOD PRESSURE ABNORMAL
     Dosage: 2.5 MG, 1X/DAY(5MG TABLET, TAKE HALF TABLET ONCE DAILY)
     Route: 048
     Dates: start: 20140930
  5. ASPIRIN. [Concomitant]
     Active Substance: ASPIRIN
     Indication: THROMBOSIS
     Dosage: 81MG ONE TABLET ONCE AT NIGHT
     Route: 048
     Dates: start: 20061124
  6. FOLIC ACID. [Concomitant]
     Active Substance: FOLIC ACID
     Dosage: 1 MG, DAILY
  7. XELJANZ [Suspect]
     Active Substance: TOFACITINIB CITRATE
     Dosage: 5 MG, 2X/DAY
     Dates: start: 20160615
  8. CVS ASPIRIN [Concomitant]
     Active Substance: ASPIRIN
     Indication: RHEUMATOID ARTHRITIS
     Dosage: 650 MG, AS NEEDED
  9. METFORMIN [Concomitant]
     Active Substance: METFORMIN HYDROCHLORIDE
     Indication: DIABETES MELLITUS
     Dosage: 1000MG (500MG TABLET TWO) ONCE IN THE MORNING
     Route: 048
     Dates: start: 20150721
  10. METHOTREXATE. [Concomitant]
     Active Substance: METHOTREXATE
     Indication: RHEUMATOID ARTHRITIS
     Dosage: UNK (4X A WEEK)
  11. CVS ASPIRIN [Concomitant]
     Active Substance: ASPIRIN
     Indication: ANALGESIC THERAPY

REACTIONS (1)
  - Groin pain [Recovered/Resolved]

NARRATIVE: CASE EVENT DATE: 20160913
